FAERS Safety Report 5186218-1 (Version None)
Quarter: 2006Q4

REPORT INFORMATION
  Report Type: 
  Country: None (occurrence: None)
  Receive Date: 20061220
  Receipt Date: 20061130
  Transmission Date: 20070319
  Serious: Yes (Life-Threatening, Hospitalization)
  Sender: FDA-Public Use
  Company Number: US-ABBOTT-06P-163-0351872-00

PATIENT
  Sex: Male
  Weight: 79.904 kg

DRUGS (10)
  1. RITONAVIR SOFT GELATIN CAPSULES [Suspect]
     Indication: HIV INFECTION
     Route: 048
     Dates: start: 20060417
  2. CRYSTAL METH [Interacting]
     Indication: DRUG USE FOR UNKNOWN INDICATION
  3. GAMMA HYDROXY BUYRATE [Interacting]
     Indication: DRUG USE FOR UNKNOWN INDICATION
  4. TMC114 [Concomitant]
     Indication: HIV INFECTION
     Route: 048
     Dates: start: 20060417
  5. TRUVADA [Concomitant]
     Indication: HIV INFECTION
     Route: 048
     Dates: start: 20060417
  6. EXCEDRIN (MIGRAINE) [Concomitant]
     Indication: HEADACHE
     Route: 048
  7. IBUPROFEN [Concomitant]
     Indication: JOINT SWELLING
     Route: 048
  8. BACTRIM [Concomitant]
     Indication: ANTIFUNGAL PROPHYLAXIS
     Route: 048
     Dates: start: 20060410
  9. TESTOSTERONE CIPIONATE [Concomitant]
     Indication: FATIGUE
     Route: 030
     Dates: start: 20060613
  10. LAMSIL [Concomitant]
     Indication: ONYCHOMYCOSIS
     Route: 048
     Dates: start: 20060708

REACTIONS (4)
  - ARRHYTHMIA [None]
  - DRUG INTERACTION [None]
  - ELECTROCARDIOGRAM QT PROLONGED [None]
  - MULTIPLE DRUG OVERDOSE [None]
